FAERS Safety Report 9087345 (Version 1)
Quarter: 2013Q1

REPORT INFORMATION
  Report Type: Report from Study
  Country: US (occurrence: US)
  Receive Date: 20130131
  Receipt Date: 20130131
  Transmission Date: 20140127
  Serious: No
  Sender: FDA-Public Use
  Company Number: US-ABBOTT-12P-163-0995519-00

PATIENT
  Sex: Female
  Weight: 55.39 kg

DRUGS (6)
  1. HUMIRA [Suspect]
     Indication: PSORIASIS
     Dates: start: 200805, end: 20111223
  2. ATORVASTATIN [Concomitant]
     Indication: BLOOD CHOLESTEROL INCREASED
  3. COMBIPATCH [Concomitant]
     Indication: HORMONE REPLACEMENT THERAPY
  4. ASTERPRO [Concomitant]
     Indication: RHINORRHOEA
  5. XANAX [Concomitant]
     Indication: ESSENTIAL TREMOR
  6. NEURONTIN [Concomitant]
     Indication: ESSENTIAL TREMOR

REACTIONS (4)
  - Nasopharyngitis [Recovered/Resolved]
  - Sinusitis [Not Recovered/Not Resolved]
  - Psoriasis [Not Recovered/Not Resolved]
  - Abdominal pain upper [Not Recovered/Not Resolved]
